FAERS Safety Report 9944912 (Version 1)
Quarter: 2014Q1

REPORT INFORMATION
  Report Type: Report from Study
  Country: US (occurrence: US)
  Receive Date: 20140303
  Receipt Date: 20140303
  Transmission Date: 20141002
  Serious: No
  Sender: FDA-Public Use
  Company Number: US-ABBVIE-13P-163-1054497-00

PATIENT
  Age: 33 Year
  Sex: Male
  Weight: 74.91 kg

DRUGS (1)
  1. HUMIRA [Suspect]
     Indication: CROHN^S DISEASE
     Dosage: LOADING DOSE
     Route: 058
     Dates: start: 20130221, end: 20130221

REACTIONS (4)
  - Abdominal discomfort [Not Recovered/Not Resolved]
  - Emotional distress [Not Recovered/Not Resolved]
  - Abdominal distension [Recovered/Resolved]
  - Gastrointestinal motility disorder [Not Recovered/Not Resolved]
